FAERS Safety Report 19000653 (Version 1)
Quarter: 2021Q1

REPORT INFORMATION
  Report Type: Spontaneous
  Country: CN (occurrence: CN)
  Receive Date: 20210311
  Receipt Date: 20210311
  Transmission Date: 20210420
  Serious: Yes (Other)
  Sender: FDA-Public Use
  Company Number: CN-US-PROVELL PHARMACEUTICALS LLC-9223588

PATIENT
  Age: 62 Year
  Sex: Female

DRUGS (1)
  1. EUTHYROX [Suspect]
     Active Substance: LEVOTHYROXINE SODIUM
     Indication: POST PROCEDURAL HYPOTHYROIDISM
     Dosage: 2.5 TABLETS FROM MONDAY TO SATURDAY, AND AT THE DAILY DOSE OF 2 TABLETS ON SUNDAY
     Route: 048

REACTIONS (3)
  - Metastases to lung [Unknown]
  - Alopecia [Unknown]
  - Thyroid cancer recurrent [Unknown]
